FAERS Safety Report 23337705 (Version 1)
Quarter: 2023Q4

REPORT INFORMATION
  Report Type: Spontaneous
  Country: US (occurrence: US)
  Receive Date: 20231226
  Receipt Date: 20231226
  Transmission Date: 20240110
  Serious: Yes (Other)
  Sender: FDA-Public Use
  Company Number: US-TEVA-VS-3137425

PATIENT
  Age: 14 Year

DRUGS (1)
  1. CYCLOSPORINE [Suspect]
     Active Substance: CYCLOSPORINE
     Indication: Hereditary alpha tryptasaemia
     Route: 065

REACTIONS (2)
  - Small fibre neuropathy [Unknown]
  - Therapy partial responder [Unknown]
